FAERS Safety Report 7387306-1 (Version None)
Quarter: 2011Q1

REPORT INFORMATION
  Report Type: 
  Country: None (occurrence: None)
  Receive Date: 20110331
  Receipt Date: 20110321
  Transmission Date: 20110831
  Serious: Yes (Other)
  Sender: FDA-Public Use
  Company Number: US-SHIRE-SPV1-2011-00377

PATIENT
  Sex: Male

DRUGS (2)
  1. VENTOLIN [Concomitant]
     Indication: ASTHMA
     Dosage: UNK, UNKNOWN
     Route: 055
  2. VYVANSE [Suspect]
     Indication: ATTENTION DEFICIT/HYPERACTIVITY DISORDER
     Dosage: 30 MG, 1X/DAY:QD
     Route: 048
     Dates: start: 20100101

REACTIONS (1)
  - RETINAL OEDEMA [None]
